FAERS Safety Report 5010641-9 (Version None)
Quarter: 2006Q2

REPORT INFORMATION
  Report Type: 
  Country: None (occurrence: None)
  Receive Date: 20060525
  Receipt Date: 20060516
  Transmission Date: 20061013
  Serious: Yes (Hospitalization)
  Sender: FDA-Public Use
  Company Number: FR-BRISTOL-MYERS SQUIBB COMPANY-13387337

PATIENT
  Age: 77 Year
  Sex: Male

DRUGS (13)
  1. ENDOXAN [Suspect]
     Indication: NON-HODGKIN'S LYMPHOMA
     Route: 042
     Dates: start: 20051213, end: 20060306
  2. DOXORUBICIN HCL [Suspect]
     Indication: NON-HODGKIN'S LYMPHOMA
     Route: 042
     Dates: start: 20060102, end: 20060306
  3. ELDISINE [Suspect]
     Indication: NON-HODGKIN'S LYMPHOMA
     Route: 042
     Dates: start: 20051213, end: 20060306
  4. PREDNISOLONE [Suspect]
     Indication: NON-HODGKIN'S LYMPHOMA
     Route: 048
     Dates: start: 20051113, end: 20060306
  5. MABTHERA [Suspect]
     Indication: NON-HODGKIN'S LYMPHOMA
     Route: 042
     Dates: start: 20060102, end: 20060306
  6. AMBROXOL [Concomitant]
  7. SERETIDE [Concomitant]
  8. PARIET [Concomitant]
  9. SEROPLEX [Concomitant]
  10. FERROUS SULFATE TAB [Concomitant]
  11. LEXOMIL [Concomitant]
  12. GAVISCON [Concomitant]
  13. PLAVIX [Concomitant]
     Dates: end: 20060320

REACTIONS (1)
  - INTERSTITIAL LUNG DISEASE [None]
